FAERS Safety Report 7537200-8 (Version None)
Quarter: 2011Q2

REPORT INFORMATION
  Report Type: 
  Country: None (occurrence: None)
  Receive Date: 20110603
  Receipt Date: 20110519
  Transmission Date: 20111010
  Serious: Yes (Hospitalization, Other)
  Sender: FDA-Public Use
  Company Number: 2011MA005877

PATIENT
  Age: 72 Year
  Sex: Male

DRUGS (3)
  1. BUPIVACAINE HCL [Concomitant]
  2. HYALURONIDASE [Concomitant]
  3. LIDOCAINE [Suspect]
     Indication: NERVE BLOCK
     Dosage: 1X INJ

REACTIONS (3)
  - RESPIRATORY DEPRESSION [None]
  - BRONCHOSPASM [None]
  - LOSS OF CONSCIOUSNESS [None]
